FAERS Safety Report 14663762 (Version 2)
Quarter: 2018Q3

REPORT INFORMATION
  Report Type: Report from Study
  Country: US (occurrence: US)
  Receive Date: 20180321
  Receipt Date: 20180701
  Transmission Date: 20181010
  Serious: Yes (Other)
  Sender: FDA-Public Use
  Company Number: PHEH2018US010462

PATIENT
  Sex: Female

DRUGS (1)
  1. COSENTYX [Suspect]
     Active Substance: SECUKINUMAB
     Indication: PSORIASIS
     Dosage: UNK UNK, QMO
     Route: 058
     Dates: end: 201801

REACTIONS (6)
  - Aphonia [Unknown]
  - Malaise [Unknown]
  - Head and neck cancer [Unknown]
  - Glucose tolerance impaired [Unknown]
  - Drug ineffective [Unknown]
  - Fatigue [Unknown]
